FAERS Safety Report 6273016-0 (Version None)
Quarter: 2009Q3

REPORT INFORMATION
  Report Type: 
  Country: None (occurrence: None)
  Receive Date: 20090720
  Receipt Date: 20090716
  Transmission Date: 20100115
  Serious: Yes (Other)
  Sender: FDA-Public Use
  Company Number: US-SP-2009-02477

PATIENT
  Age: 84 Year
  Sex: Male

DRUGS (10)
  1. THERACYS [Suspect]
     Indication: BLADDER CANCER
     Route: 065
  2. THERACYS [Suspect]
     Route: 065
  3. METAMUCIL [Concomitant]
  4. TORSEMIDE [Concomitant]
  5. MULTI-VITAMINS [Concomitant]
  6. CALCIUM [Concomitant]
  7. ZOCOR [Concomitant]
  8. ASPIRIN [Concomitant]
  9. CELEBREX [Concomitant]
  10. FOSAMAX [Concomitant]

REACTIONS (2)
  - PYREXIA [None]
  - URINARY TRACT INFECTION [None]
